FAERS Safety Report 11998600 (Version 1)
Quarter: 2016Q1

REPORT INFORMATION
  Report Type: Spontaneous
  Country: US (occurrence: None)
  Receive Date: 20160202
  Receipt Date: 20160202
  Transmission Date: 20160526
  Serious: Yes (Hospitalization)
  Sender: FDA-Public Use
  Company Number: None

PATIENT
  Age: 71 Year
  Sex: Female

DRUGS (17)
  1. RITUXIMAB [Suspect]
     Active Substance: RITUXIMAB
     Indication: DIFFUSE LARGE B-CELL LYMPHOMA
     Dosage: 3RD CYCLE
  2. ETOPOSIDE. [Suspect]
     Active Substance: ETOPOSIDE
  3. BACTRIM DS ALLOPURINOL [Concomitant]
  4. PREDNISONE. [Suspect]
     Active Substance: PREDNISONE
  5. ALBUTEROL. [Concomitant]
     Active Substance: ALBUTEROL
  6. ANASTROZOLE. [Concomitant]
     Active Substance: ANASTROZOLE
  7. CIPROFLOXACIN. [Concomitant]
     Active Substance: CIPROFLOXACIN
  8. RANITIDINE [Concomitant]
     Active Substance: RANITIDINE\RANITIDINE HYDROCHLORIDE
  9. COMPAZINE [Concomitant]
     Active Substance: PROCHLORPERAZINE MALEATE
  10. CYCLOPHOSPHAMIDE. [Suspect]
     Active Substance: CYCLOPHOSPHAMIDE
  11. ZOFRAN [Concomitant]
     Active Substance: ONDANSETRON HYDROCHLORIDE
  12. ACYCLOVIR. [Concomitant]
     Active Substance: ACYCLOVIR
  13. METOPROLOL. [Concomitant]
     Active Substance: METOPROLOL
  14. OXYCODONE [Concomitant]
     Active Substance: OXYCODONE
  15. FLUCONAZOLE. [Concomitant]
     Active Substance: FLUCONAZOLE
  16. VINCRISTINE [Suspect]
     Active Substance: VINCRISTINE
  17. DOXORUBICIN [Suspect]
     Active Substance: DOXORUBICIN

REACTIONS (3)
  - Neutropenia [None]
  - Pyrexia [None]
  - Pancytopenia [None]

NARRATIVE: CASE EVENT DATE: 20150909
